FAERS Safety Report 4750290-0 (Version None)
Quarter: 2005Q3

REPORT INFORMATION
  Report Type: 
  Country: None (occurrence: None)
  Receive Date: 20050823
  Receipt Date: 20050816
  Transmission Date: 20060218
  Serious: Yes (Death)
  Sender: FDA-Public Use
  Company Number: US-JNJFOC-20050604287

PATIENT
  Sex: Male

DRUGS (4)
  1. IMODIUM A-D [Suspect]
  2. IMODIUM A-D [Suspect]
  3. PROZAC [Interacting]
     Indication: DRUG USE FOR UNKNOWN INDICATION
     Route: 048
  4. FLUOXETINE [Interacting]
     Indication: DRUG USE FOR UNKNOWN INDICATION

REACTIONS (4)
  - DRUG INTERACTION [None]
  - DRUG TOXICITY [None]
  - DYSPNOEA [None]
  - SYNCOPE [None]
